FAERS Safety Report 5318406-5 (Version None)
Quarter: 2007Q2

REPORT INFORMATION
  Report Type: 
  Country: None (occurrence: None)
  Receive Date: 20070501
  Receipt Date: 20070419
  Transmission Date: 20071010
  Serious: Yes (Other)
  Sender: FDA-Public Use
  Company Number: 100#08#2007-01360

PATIENT
  Age: 20 Year
  Sex: Female

DRUGS (2)
  1. FLUOXETINE [Suspect]
     Indication: DRUG USE FOR UNKNOWN INDICATION
     Dosage: SEE IMAGE
     Dates: start: 20030601
  2. MIRTAZAPINE (MIRTAZAPINE) (MIRTAZAPINE) [Concomitant]

REACTIONS (5)
  - AGGRESSION [None]
  - CHILD NEGLECT [None]
  - EMOTIONAL DISORDER [None]
  - IMPRISONMENT [None]
  - KLEPTOMANIA [None]
